FAERS Safety Report 22015164 (Version 1)
Quarter: 2023Q1

REPORT INFORMATION
  Report Type: Other
  Country: US (occurrence: None)
  Receive Date: 20230221
  Receipt Date: 20230221
  Transmission Date: 20230418
  Serious: Yes (Other)
  Sender: FDA-Public Use
  Company Number: US-ROCHE-3288710

PATIENT
  Age: 64 Year
  Sex: Female

DRUGS (1)
  1. XELODA [Suspect]
     Active Substance: CAPECITABINE
     Indication: Breast cancer female
     Dosage: 3 TABLETS BY MOUTH TWICE A DAY 1 WEEK ON, 1 WEEK OFF
     Route: 048

REACTIONS (4)
  - Brain neoplasm [Unknown]
  - Metastases to bone [Unknown]
  - Neoplasm [Unknown]
  - Metastases to central nervous system [Unknown]
